FAERS Safety Report 9361338 (Version 2)
Quarter: 2013Q4

REPORT INFORMATION
  Report Type: Spontaneous
  Country: US (occurrence: US)
  Receive Date: 20130621
  Receipt Date: 20131022
  Transmission Date: 20140711
  Serious: Yes (Hospitalization)
  Sender: FDA-Public Use
  Company Number: US-PFIZER INC-2013184649

PATIENT
  Age: 65 Year
  Sex: Female

DRUGS (2)
  1. SOMAVERT [Suspect]
     Indication: HYPOTHALAMO-PITUITARY DISORDER
     Dosage: 10 MG, 1X/DAY
     Route: 058
     Dates: start: 20110511
  2. SOMAVERT [Suspect]
     Indication: ACROMEGALY
     Dosage: 10 MG, 1X/DAY
     Route: 058
     Dates: start: 20110604

REACTIONS (2)
  - Cardiac failure congestive [Recovering/Resolving]
  - Insulin-like growth factor increased [Unknown]
